FAERS Safety Report 10450893 (Version 1)
Quarter: 2014Q3

REPORT INFORMATION
  Report Type: Not Available
  Country: NO (occurrence: NO)
  Receive Date: 20140912
  Receipt Date: 20140912
  Transmission Date: 20150326
  Serious: Yes (Life-Threatening, Hospitalization)
  Sender: FDA-Public Use
  Company Number: NO-MUNDIPHARMA DS AND PHARMACOVIGILANCE-GBR-2014-0021117

PATIENT
  Age: 87 Year
  Sex: Male

DRUGS (4)
  1. LYRICA [Suspect]
     Active Substance: PREGABALIN
     Indication: DRUG DISPENSED TO WRONG PATIENT
     Dosage: 225 MG, SINGLE
     Route: 048
     Dates: start: 20140710, end: 20140710
  2. RAMIPRIL. [Concomitant]
     Active Substance: RAMIPRIL
     Indication: DRUG DISPENSED TO WRONG PATIENT
     Dosage: 5 MG, SINGLE
     Route: 048
     Dates: start: 20140710, end: 20140710
  3. OXYNORM 5 MG KAPSLER, HARDE [Interacting]
     Active Substance: OXYCODONE HYDROCHLORIDE
     Indication: PAIN
     Dosage: 5 MG, PRN
     Route: 048
  4. NORSPAN [Suspect]
     Active Substance: BUPRENORPHINE
     Indication: PAIN
     Dosage: 15 MCG, Q1H
     Route: 062

REACTIONS (3)
  - Drug dispensed to wrong patient [Unknown]
  - Coma [Unknown]
  - Oxygen saturation decreased [Unknown]

NARRATIVE: CASE EVENT DATE: 20140710
